FAERS Safety Report 5169070-X (Version None)
Quarter: 2006Q4

REPORT INFORMATION
  Report Type: 
  Country: None (occurrence: None)
  Receive Date: 20061211
  Receipt Date: 20061201
  Transmission Date: 20070319
  Serious: Yes (Hospitalization)
  Sender: FDA-Public Use
  Company Number: US-JNJFOC-20061201121

PATIENT
  Sex: Female
  Weight: 99.79 kg

DRUGS (7)
  1. INFLIXIMAB [Suspect]
     Indication: RHEUMATOID ARTHRITIS
     Route: 042
  2. PREDNISONE TAB [Concomitant]
  3. FOLIC ACID [Concomitant]
  4. FUROSEMIDE [Concomitant]
  5. POTASSIUM ACETATE [Concomitant]
  6. ACTONEL [Concomitant]
  7. CALTRATE [Concomitant]

REACTIONS (1)
  - JOINT EFFUSION [None]
